FAERS Safety Report 11640930 (Version 2)
Quarter: 2015Q4

REPORT INFORMATION
  Report Type: Spontaneous
  Country: GB (occurrence: GB)
  Receive Date: 20151019
  Receipt Date: 20151104
  Transmission Date: 20160304
  Serious: Yes (Other)
  Sender: FDA-Public Use
  Company Number: GB-PFIZER INC-2015347355

PATIENT
  Sex: Female

DRUGS (1)
  1. ESTROGENS, CONJUGATED AND MEDROXYPROGESTERONE ACETATE [Suspect]
     Active Substance: ESTROGENS, CONJUGATED\MEDROXYPROGESTERONE ACETATE
     Dosage: 0.625 MG/ 5 MG

REACTIONS (13)
  - Eye swelling [Recovering/Resolving]
  - Malaise [Recovering/Resolving]
  - Peripheral swelling [Recovering/Resolving]
  - Increased appetite [Recovering/Resolving]
  - Breast atrophy [Recovering/Resolving]
  - Incontinence [Recovering/Resolving]
  - Joint swelling [Recovering/Resolving]
  - Abnormal weight gain [Recovering/Resolving]
  - Dizziness [Recovering/Resolving]
  - Hyperhidrosis [Recovering/Resolving]
  - Headache [Recovering/Resolving]
  - Nausea [Recovering/Resolving]
  - Hypersomnia [Recovering/Resolving]

NARRATIVE: CASE EVENT DATE: 2015
